FAERS Safety Report 10047821 (Version 1)
Quarter: 2014Q1

REPORT INFORMATION
  Report Type: Spontaneous
  Country: US (occurrence: US)
  Receive Date: 20140331
  Receipt Date: 20140331
  Transmission Date: 20141002
  Serious: No
  Sender: FDA-Public Use
  Company Number: US-TEVA-470046USA

PATIENT
  Sex: Male

DRUGS (1)
  1. GABITRIL [Suspect]
     Dates: start: 201209

REACTIONS (2)
  - Feeling abnormal [Recovered/Resolved]
  - Expired drug administered [Recovered/Resolved]
